FAERS Safety Report 7376992-8 (Version None)
Quarter: 2011Q1

REPORT INFORMATION
  Report Type: 
  Country: None (occurrence: None)
  Receive Date: 20110328
  Receipt Date: 20110317
  Transmission Date: 20110831
  Serious: Yes (Other)
  Sender: FDA-Public Use
  Company Number: GB-BIOGENIDEC-2011BI010218

PATIENT
  Age: 46 Year
  Sex: Male

DRUGS (1)
  1. AVONEX [Suspect]
     Indication: MULTIPLE SCLEROSIS
     Dates: start: 20020701

REACTIONS (4)
  - MUSCULOSKELETAL DISORDER [None]
  - HAEMATOMA [None]
  - ABASIA [None]
  - INFLUENZA LIKE ILLNESS [None]
